FAERS Safety Report 10881957 (Version 1)
Quarter: 2015Q1

REPORT INFORMATION
  Report Type: Spontaneous
  Country: US (occurrence: None)
  Receive Date: 20150225
  Receipt Date: 20150225
  Transmission Date: 20150721
  Serious: Yes (Disabling, Other)
  Sender: FDA-Public Use
  Company Number: None

PATIENT
  Age: 48 Year
  Sex: Female
  Weight: 113.4 kg

DRUGS (8)
  1. PREDNISONE. [Concomitant]
     Active Substance: PREDNISONE
  2. LEVAQUIN [Suspect]
     Active Substance: LEVOFLOXACIN
     Indication: ASTHMA
     Dosage: 1 TAB PO ONCE, ONCE DAILY, TAKEN BY MOUTH
     Route: 048
     Dates: start: 20150212, end: 20150216
  3. LEVAQUIN [Suspect]
     Active Substance: LEVOFLOXACIN
     Indication: SINUSITIS
     Dosage: 1 TAB PO ONCE, ONCE DAILY, TAKEN BY MOUTH
     Route: 048
     Dates: start: 20150212, end: 20150216
  4. ALBUTEROL. [Concomitant]
     Active Substance: ALBUTEROL
  5. ADVAIR COMBI [Concomitant]
  6. SINGULAIR [Concomitant]
     Active Substance: MONTELUKAST SODIUM
  7. BENADRYL??? [Concomitant]
  8. VITAMIN C [Concomitant]
     Active Substance: ASCORBIC ACID

REACTIONS (5)
  - Rash pruritic [None]
  - Drug hypersensitivity [None]
  - Rash [None]
  - Hypertension [None]
  - Skin disorder [None]

NARRATIVE: CASE EVENT DATE: 20150217
